FAERS Safety Report 5398504-0 (Version None)
Quarter: 2007Q3

REPORT INFORMATION
  Report Type: 
  Country: None (occurrence: None)
  Receive Date: 20070726
  Receipt Date: 20070122
  Transmission Date: 20080115
  Serious: No
  Sender: FDA-Public Use
  Company Number: US-AMGEN-KDL208554

PATIENT
  Sex: Female
  Weight: 47.7 kg

DRUGS (9)
  1. PROCRIT [Suspect]
     Indication: DRUG USE FOR UNKNOWN INDICATION
     Dates: start: 20060601
  2. ATENOLOL [Concomitant]
  3. BURINEX [Concomitant]
  4. CARDURA [Concomitant]
  5. CARDIZEM [Concomitant]
  6. FOLIC ACID [Concomitant]
  7. FORTEO [Concomitant]
     Route: 058
  8. VITAMIN CAP [Concomitant]
  9. CALCIUM CHLORIDE [Concomitant]

REACTIONS (2)
  - ASTHENIA [None]
  - FATIGUE [None]
